FAERS Safety Report 4971405-5 (Version None)
Quarter: 2006Q2

REPORT INFORMATION
  Report Type: 
  Country: None (occurrence: None)
  Receive Date: 20060406
  Receipt Date: 20060316
  Transmission Date: 20061013
  Serious: No
  Sender: FDA-Public Use
  Company Number: MX200603005254

PATIENT
  Age: 46 Year
  Sex: Male
  Weight: 78 kg

DRUGS (2)
  1. CIALIS [Suspect]
     Indication: ERECTILE DYSFUNCTION
     Dosage: 20 MG ORAL
     Route: 048
     Dates: start: 20040101
  2. VITAMINS [Concomitant]

REACTIONS (4)
  - DRUG INEFFECTIVE [None]
  - FLUSHING [None]
  - INSOMNIA [None]
  - VISION BLURRED [None]
